FAERS Safety Report 23077871 (Version 3)
Quarter: 2023Q4

REPORT INFORMATION
  Report Type: Report from Study
  Country: US (occurrence: US)
  Receive Date: 20231018
  Receipt Date: 20231107
  Transmission Date: 20240109
  Serious: No
  Sender: FDA-Public Use
  Company Number: US-ARGENX-2023-ARGX-US001333

PATIENT

DRUGS (7)
  1. PLACEBO [Suspect]
     Active Substance: UNSPECIFIED INGREDIENT
     Indication: Postural orthostatic tachycardia syndrome
     Dates: start: 20230228
  2. PLACEBO [Suspect]
     Active Substance: UNSPECIFIED INGREDIENT
     Dosage: UNK
     Dates: start: 20230329, end: 20230620
  3. TRETINOIN [Concomitant]
     Active Substance: TRETINOIN
     Indication: Acne
     Dosage: 1 APPLICATION/QOD (EVERY OTHER DAY)
     Route: 061
     Dates: start: 20230214
  4. NEURONTIN [Concomitant]
     Active Substance: GABAPENTIN
     Indication: Anxiety disorder
     Dosage: 200 MG, TID
     Route: 048
     Dates: start: 20220331
  5. NEURONTIN [Concomitant]
     Active Substance: GABAPENTIN
     Indication: Depression
  6. KLONOPIN [Concomitant]
     Active Substance: CLONAZEPAM
     Indication: Panic disorder
     Dosage: 0.5 MG, PRN
     Route: 048
     Dates: start: 20150604
  7. DROSPIRENONE AND ETHINYL ESTRADIOL [Concomitant]
     Active Substance: DROSPIRENONE\ETHINYL ESTRADIOL
     Indication: Contraception
     Dosage: 1 TABLET/QD (DAILY)
     Route: 048
     Dates: start: 20220926

REACTIONS (1)
  - Otitis media acute [Recovered/Resolved]

NARRATIVE: CASE EVENT DATE: 20230406
